FAERS Safety Report 7105695-X (Version None)
Quarter: 2010Q4

REPORT INFORMATION
  Report Type: 
  Country: None (occurrence: None)
  Receive Date: 20101116
  Receipt Date: 20101104
  Transmission Date: 20110411
  Serious: Yes (Other)
  Sender: FDA-Public Use
  Company Number: PHHY2010JP68082

PATIENT
  Sex: Male
  Weight: 65 kg

DRUGS (4)
  1. VOLTAREN [Suspect]
     Indication: ANALGESIC THERAPY
     Dosage: 25 MG
     Route: 048
     Dates: start: 20071206, end: 20071206
  2. ANEXATE [Concomitant]
     Indication: DENTAL IMPLANTATION
  3. XYLOCAINE [Concomitant]
     Indication: DENTAL IMPLANTATION
     Dosage: UNK
  4. MIDAZOLAM HCL [Concomitant]
     Indication: DENTAL IMPLANTATION
     Dosage: UNK

REACTIONS (8)
  - BLOOD PRESSURE DECREASED [None]
  - HISTAMINE LEVEL INCREASED [None]
  - HYPERSENSITIVITY [None]
  - OXYGEN SATURATION DECREASED [None]
  - RASH [None]
  - TACHYCARDIA [None]
  - TOOTH LOSS [None]
  - URTICARIA [None]
